FAERS Safety Report 13030217 (Version 1)
Quarter: 2016Q4

REPORT INFORMATION
  Report Type: Spontaneous
  Country: FR (occurrence: FR)
  Receive Date: 20161215
  Receipt Date: 20161215
  Transmission Date: 20170207
  Serious: Yes (Other)
  Sender: FDA-Public Use
  Company Number: FR-CELGENEUS-FRA-2015032253

PATIENT
  Sex: Male

DRUGS (2)
  1. ASPIRIN. [Concomitant]
     Active Substance: ASPIRIN
     Indication: THROMBOSIS PROPHYLAXIS
     Dosage: 81
     Route: 065
  2. POMALIDOMIDE [Suspect]
     Active Substance: POMALIDOMIDE
     Indication: KAPOSI^S SARCOMA
     Dosage: 5
     Route: 048

REACTIONS (21)
  - Primary effusion lymphoma [Unknown]
  - Squamous cell carcinoma of skin [Unknown]
  - Hodgkin^s disease [Unknown]
  - Anaemia [Unknown]
  - Anxiety [Unknown]
  - Constipation [Unknown]
  - Fatigue [Unknown]
  - Depression [Unknown]
  - Hypothyroidism [Unknown]
  - Irritability [Unknown]
  - Neutropenia [Unknown]
  - Thrombocytopenia [Unknown]
  - Alanine aminotransferase increased [Unknown]
  - Oedema peripheral [Unknown]
  - Lymphopenia [Unknown]
  - Kaposi^s sarcoma [Unknown]
  - Respiratory tract infection [Unknown]
  - Rash [Unknown]
  - Disturbance in attention [Unknown]
  - Pyrexia [Unknown]
  - Soft tissue infection [Unknown]
